FAERS Safety Report 11810019 (Version 1)
Quarter: 2015Q4

REPORT INFORMATION
  Report Type: Spontaneous
  Country: FR (occurrence: FR)
  Receive Date: 20151208
  Receipt Date: 20151208
  Transmission Date: 20160305
  Serious: Yes (Hospitalization)
  Sender: FDA-Public Use
  Company Number: FR-ROCHE-1672493

PATIENT
  Age: 65 Year
  Sex: Female
  Weight: 84 kg

DRUGS (3)
  1. HERCEPTIN [Suspect]
     Active Substance: TRASTUZUMAB
     Route: 058
     Dates: start: 20150219
  2. VELBE [Suspect]
     Active Substance: VINBLASTINE SULFATE
     Indication: PRODUCT USED FOR UNKNOWN INDICATION
     Dosage: SINGLE INTAKE
     Route: 042
     Dates: start: 20150128, end: 20150128
  3. HERCEPTIN [Suspect]
     Active Substance: TRASTUZUMAB
     Indication: BREAST CANCER
     Route: 058

REACTIONS (7)
  - Skin ulcer [Recovered/Resolved]
  - Drug administration error [Recovered/Resolved]
  - Erythema [Recovered/Resolved]
  - Skin graft [Recovered/Resolved]
  - Skin warm [Recovered/Resolved]
  - Skin necrosis [Recovered/Resolved]
  - Pain of skin [Recovered/Resolved]

NARRATIVE: CASE EVENT DATE: 20150128
